FAERS Safety Report 18472930 (Version 1)
Quarter: 2020Q4

REPORT INFORMATION
  Report Type: Spontaneous
  Country: JP (occurrence: JP)
  Receive Date: 20201106
  Receipt Date: 20201106
  Transmission Date: 20210114
  Serious: Yes (Other)
  Sender: FDA-Public Use
  Company Number: NVSJ2020JP010999

PATIENT
  Age: 51 Year
  Sex: Male

DRUGS (1)
  1. VOTRIENT [Suspect]
     Active Substance: PAZOPANIB HYDROCHLORIDE
     Indication: RENAL CELL CARCINOMA
     Dosage: 600 MG
     Route: 048
     Dates: start: 20201009

REACTIONS (9)
  - Liver disorder [Unknown]
  - Alanine aminotransferase increased [Unknown]
  - Fibrin D dimer increased [Unknown]
  - Fibrin degradation products increased [Unknown]
  - Inflammation [Unknown]
  - Aspartate aminotransferase increased [Unknown]
  - Protein urine present [Unknown]
  - Pyrexia [Unknown]
  - Hepatitis B surface antibody positive [Unknown]

NARRATIVE: CASE EVENT DATE: 20201017
